FAERS Safety Report 7332866-X (Version None)
Quarter: 2011Q1

REPORT INFORMATION
  Report Type: 
  Country: None (occurrence: None)
  Receive Date: 20110304
  Receipt Date: 20110221
  Transmission Date: 20110831
  Serious: Yes (Other)
  Sender: FDA-Public Use
  Company Number: PHHY2011US14178

PATIENT
  Age: 22 Year
  Sex: Female

DRUGS (2)
  1. METOPROLOL [Suspect]
     Indication: HEART RATE ABNORMAL
     Dosage: 5 MG, (3 REPEATED DOSES EVERY 5 MIN)
     Route: 042
  2. METOPROLOL [Suspect]
     Indication: SINUS RHYTHM
     Dosage: 25 MG, BID
     Route: 048

REACTIONS (4)
  - TACHYCARDIA [None]
  - DRUG EXPOSURE DURING PREGNANCY [None]
  - HYPOTENSION [None]
  - PREMATURE LABOUR [None]
